FAERS Safety Report 13739794 (Version 1)
Quarter: 2017Q3

REPORT INFORMATION
  Report Type: Spontaneous
  Country: BE (occurrence: BE)
  Receive Date: 20170710
  Receipt Date: 20170710
  Transmission Date: 20171127
  Serious: Yes (Hospitalization)
  Sender: FDA-Public Use
  Company Number: PHHY2009BE58867

PATIENT
  Age: 74 Year
  Sex: Male

DRUGS (1)
  1. ARTEOPTIC 2% [Suspect]
     Active Substance: CARTEOLOL HYDROCHLORIDE
     Indication: GLAUCOMA
     Dosage: 1 DRP, QD
     Route: 047
     Dates: start: 200909, end: 200911

REACTIONS (5)
  - Small intestine operation [Unknown]
  - Small intestine carcinoma [Unknown]
  - Abdominal pain [Recovered/Resolved]
  - Erectile dysfunction [Recovered/Resolved]
  - Nausea [Recovered/Resolved]

NARRATIVE: CASE EVENT DATE: 200910
